FAERS Safety Report 23164918 (Version 2)
Quarter: 2023Q4

REPORT INFORMATION
  Report Type: Report from Study
  Country: US (occurrence: US)
  Receive Date: 20231109
  Receipt Date: 20231116
  Transmission Date: 20240110
  Serious: Yes (Other)
  Sender: FDA-Public Use
  Company Number: US-ABBVIE-5368174

PATIENT
  Sex: Female

DRUGS (1)
  1. HUMIRA [Suspect]
     Active Substance: ADALIMUMAB
     Indication: Rheumatoid arthritis
     Route: 058
     Dates: start: 20040101

REACTIONS (7)
  - Knee arthroplasty [Unknown]
  - Patella fracture [Unknown]
  - Knee arthroplasty [Unknown]
  - Fall [Unknown]
  - Incorrect dose administered [Unknown]
  - Device issue [Unknown]
  - Device physical property issue [Unknown]

NARRATIVE: CASE EVENT DATE: 20130101
